FAERS Safety Report 20155749 (Version 1)
Quarter: 2021Q4

REPORT INFORMATION
  Report Type: Report from Study
  Country: EG (occurrence: EG)
  Receive Date: 20211207
  Receipt Date: 20211207
  Transmission Date: 20220303
  Serious: Yes (Other)
  Sender: FDA-Public Use
  Company Number: EG-NOVARTISPH-NVSC2021EG278537

PATIENT
  Age: 25 Year
  Sex: Female

DRUGS (4)
  1. GILENYA [Suspect]
     Active Substance: FINGOLIMOD HYDROCHLORIDE
     Indication: Multiple sclerosis
     Dosage: 0.5 MG, QD
     Route: 048
     Dates: start: 20211030, end: 20211128
  2. OSSOFORTIN [Concomitant]
     Indication: Product used for unknown indication
     Dosage: 1 DOSAGE FORM, QD
     Route: 048
     Dates: start: 202107
  3. OMEGA 3 PLUS [Concomitant]
     Indication: Nutritional supplementation
     Dosage: 1 DOSAGE FORM, BIW
     Route: 048
     Dates: start: 202107
  4. NEUROTONE [Concomitant]
     Indication: Product used for unknown indication
     Dosage: 1 DOSAGE FORM, BIW
     Route: 048
     Dates: start: 202110

REACTIONS (2)
  - Nervousness [Not Recovered/Not Resolved]
  - Feeling hot [Not Recovered/Not Resolved]

NARRATIVE: CASE EVENT DATE: 20211030
